FAERS Safety Report 24313696 (Version 1)
Quarter: 2024Q3

REPORT INFORMATION
  Report Type: Spontaneous
  Country: US (occurrence: None)
  Receive Date: 20240911
  Receipt Date: 20240911
  Transmission Date: 20241017
  Serious: No
  Sender: Public
  Company Number: None

PATIENT
  Sex: 0

DRUGS (1)
  1. MIRABEGRON [Suspect]
     Active Substance: MIRABEGRON

REACTIONS (3)
  - Adverse reaction [None]
  - Drug intolerance [None]
  - Drug ineffective [None]
